FAERS Safety Report 7091505-6 (Version None)
Quarter: 2010Q4

REPORT INFORMATION
  Report Type: 
  Country: None (occurrence: None)
  Receive Date: 20101109
  Receipt Date: 20101103
  Transmission Date: 20110411
  Serious: Yes (Hospitalization)
  Sender: FDA-Public Use
  Company Number: FR-PFIZER INC-2010140412

PATIENT
  Age: 20 Day
  Sex: Female
  Weight: 0.85 kg

DRUGS (9)
  1. LINEZOLID [Suspect]
     Indication: STAPHYLOCOCCAL INFECTION
     Dosage: 30 MG/KG, 1X/DAY
     Route: 042
     Dates: start: 20100622, end: 20100626
  2. TRIFLUCAN [Concomitant]
     Indication: ANTIFUNGAL PROPHYLAXIS
     Dosage: 2 MG/KG, EVERY 72 HOURS
     Route: 042
  3. VANCOMYCIN [Concomitant]
     Indication: STAPHYLOCOCCAL INFECTION
     Dosage: UNK
     Route: 042
     Dates: start: 20100616, end: 20100622
  4. VANCOMYCIN [Concomitant]
     Dosage: UNK
     Dates: start: 20100626, end: 20100630
  5. FORTUM [Concomitant]
     Indication: STAPHYLOCOCCAL INFECTION
     Dosage: UNK
     Route: 042
     Dates: start: 20100616, end: 20100629
  6. CLAVENTIN [Concomitant]
     Indication: STAPHYLOCOCCAL INFECTION
     Dosage: 500 MG/20 MG, CHANGING DOSE
     Route: 042
     Dates: start: 20100616, end: 20100630
  7. HYDROCORTISONE HEMISUCCINATE [Concomitant]
     Indication: HAEMODYNAMIC INSTABILITY
     Dosage: UNK
     Dates: start: 20100622
  8. DOPAMINE [Concomitant]
     Indication: HAEMODYNAMIC INSTABILITY
     Dosage: UNK
     Route: 042
     Dates: start: 20100622
  9. INSULIN [Concomitant]
     Indication: HYPERGLYCAEMIA

REACTIONS (3)
  - LACTIC ACIDOSIS [None]
  - POLYURIA [None]
  - THROMBOCYTOPENIA [None]
